FAERS Safety Report 9073324 (Version 1)
Quarter: 2013Q1

REPORT INFORMATION
  Report Type: Report from Study
  Country: US (occurrence: US)
  Receive Date: 20130129
  Receipt Date: 20130129
  Transmission Date: 20140127
  Serious: No
  Sender: FDA-Public Use
  Company Number: US-ABBOTT-12P-163-0895367-00

PATIENT
  Age: 76 None
  Sex: Female

DRUGS (1)
  1. HUMIRA 40 MG/0.8 ML PEN [Suspect]
     Indication: CROHN^S DISEASE
     Route: 058
     Dates: start: 201108

REACTIONS (13)
  - Ear discomfort [Unknown]
  - Injection site pruritus [Unknown]
  - Injection site erythema [Unknown]
  - Injection site mass [Unknown]
  - Sensory disturbance [Recovering/Resolving]
  - Gingival pain [Unknown]
  - Pruritus [Unknown]
  - Nasal discomfort [Unknown]
  - Oropharyngeal discomfort [Unknown]
  - Tongue disorder [Unknown]
  - Disturbance in attention [Unknown]
  - Pruritus [Unknown]
  - Pain [Unknown]
